FAERS Safety Report 14571542 (Version 2)
Quarter: 2018Q1

REPORT INFORMATION
  Report Type: Spontaneous
  Country: FR (occurrence: FR)
  Receive Date: 20180226
  Receipt Date: 20180303
  Transmission Date: 20180509
  Serious: Yes (Hospitalization)
  Sender: FDA-Public Use
  Company Number: FR-009507513-1802FRA012425

PATIENT
  Age: 78 Year
  Sex: Male
  Weight: 84 kg

DRUGS (8)
  1. DOLIPRANE [Suspect]
     Active Substance: ACETAMINOPHEN
     Indication: BRONCHITIS
     Dosage: UNK
     Route: 048
     Dates: start: 20171026, end: 20171104
  2. CLARITHROMYCIN. [Suspect]
     Active Substance: CLARITHROMYCIN
     Indication: BRONCHITIS
     Dosage: UNK
     Route: 048
     Dates: start: 20171026, end: 20171104
  3. PIVALONE [Suspect]
     Active Substance: TIXOCORTOL PIVALATE
     Indication: BRONCHITIS
     Dosage: UNK
     Route: 048
     Dates: start: 20171026, end: 20171104
  4. AERIUS [Suspect]
     Active Substance: DESLORATADINE
     Indication: BRONCHITIS
     Dosage: UNK
     Route: 048
     Dates: start: 20171026, end: 20171104
  5. SOLUPRED (PREDNISOLONE) [Suspect]
     Active Substance: PREDNISOLONE
     Indication: BRONCHITIS
     Dosage: UNK
     Route: 048
     Dates: start: 20171026, end: 20171104
  6. BIOCALYPTOL (PHOLCODINE) [Suspect]
     Active Substance: PHOLCODINE
     Indication: BRONCHITIS
     Dosage: UNK
     Route: 048
     Dates: start: 20171026, end: 20171104
  7. GELSEMIUM [Concomitant]
     Active Substance: GELSEMIUM SEMPERVIRENS ROOT
     Dosage: UNK
     Route: 048
  8. NOCTAMIDE [Concomitant]
     Active Substance: LORMETAZEPAM
     Dosage: UNK
     Route: 048

REACTIONS (1)
  - Drug reaction with eosinophilia and systemic symptoms [Recovered/Resolved]

NARRATIVE: CASE EVENT DATE: 20171104
